FAERS Safety Report 6111774-6 (Version None)
Quarter: 2009Q1

REPORT INFORMATION
  Report Type: 
  Country: None (occurrence: None)
  Receive Date: 20090311
  Receipt Date: 20090112
  Transmission Date: 20090719
  Serious: No
  Sender: FDA-Public Use
  Company Number: US-TYCO HEALTHCARE/MALLINCKRODT-T200900042

PATIENT
  Sex: Male
  Weight: 92.971 kg

DRUGS (2)
  1. RESTORIL [Suspect]
     Indication: SLEEP DISORDER
     Dosage: UNK, HS
     Route: 048
  2. ANTIHYPERTENSIVES [Concomitant]
     Indication: HYPERTENSION
     Route: 048

REACTIONS (1)
  - EYE PAIN [None]
